FAERS Safety Report 11463420 (Version 1)
Quarter: 2015Q3

REPORT INFORMATION
  Report Type: Spontaneous
  Country: US (occurrence: US)
  Receive Date: 20150831
  Receipt Date: 20150831
  Transmission Date: 20151125
  Serious: No
  Sender: FDA-Public Use
  Company Number: US-ELI_LILLY_AND_COMPANY-US201103002018

PATIENT
  Age: 46 Year
  Sex: Female

DRUGS (1)
  1. CYMBALTA [Suspect]
     Active Substance: DULOXETINE HYDROCHLORIDE
     Indication: FIBROMYALGIA
     Dosage: 30 MG, DAILY (1/D)
     Dates: start: 20110220

REACTIONS (6)
  - Intentional product misuse [Recovered/Resolved]
  - Chest pain [Unknown]
  - Feeling abnormal [Unknown]
  - Feeling hot [Unknown]
  - Cold sweat [Unknown]
  - Rash [Unknown]

NARRATIVE: CASE EVENT DATE: 20110220
